FAERS Safety Report 9827651 (Version 2)
Quarter: 2014Q1

REPORT INFORMATION
  Report Type: Spontaneous
  Country: ZA (occurrence: ZA)
  Receive Date: 20140117
  Receipt Date: 20140124
  Transmission Date: 20141002
  Serious: Yes (Death, Life-Threatening, Hospitalization)
  Sender: FDA-Public Use
  Company Number: ZA-PFIZER INC-2014011428

PATIENT
  Age: 80 Year
  Sex: Female

DRUGS (8)
  1. DISOPYRAMIDE PHOSPHATE [Suspect]
     Indication: SUPRAVENTRICULAR TACHYCARDIA
     Dosage: 50 MG, OVER 2 MINUTES
     Route: 042
  2. DISOPYRAMIDE PHOSPHATE [Suspect]
     Dosage: 75 MG, UNK
     Route: 042
  3. DISOPYRAMIDE PHOSPHATE [Suspect]
     Dosage: 300 MG, UNK
     Route: 048
  4. DIGOXIN [Concomitant]
     Indication: NODAL RHYTHM
     Dosage: 0.5 MG, UNK
     Route: 042
  5. ISOPROTERENOL [Concomitant]
     Indication: NODAL RHYTHM
     Route: 042
  6. GLUCAGON [Concomitant]
     Indication: NODAL RHYTHM
     Route: 042
  7. VERAPAMIL [Concomitant]
     Indication: SUPRAVENTRICULAR TACHYCARDIA
     Dosage: 10 MG, GIVEN OVER 20 MINUTES
     Route: 042
  8. PROPRANOLOL [Concomitant]
     Indication: SUPRAVENTRICULAR TACHYCARDIA
     Dosage: 5 MG, OVER 8 HOURS
     Route: 042

REACTIONS (3)
  - Cardiac arrest [Fatal]
  - Ventricular tachycardia [Fatal]
  - Syncope [Recovered/Resolved]
